FAERS Safety Report 6011511-X (Version None)
Quarter: 2008Q4

REPORT INFORMATION
  Report Type: 
  Country: None (occurrence: None)
  Receive Date: 20081218
  Receipt Date: 19971212
  Transmission Date: 20090506
  Serious: Yes (Death, Hospitalization)
  Sender: FDA-Public Use
  Company Number: FR-ROCHE-85512

PATIENT
  Sex: Male
  Weight: 55 kg

DRUGS (10)
  1. INVIRASE [Suspect]
     Indication: HIV INFECTION
     Route: 048
     Dates: start: 19970501, end: 19970817
  2. NORVIR [Suspect]
     Indication: HIV INFECTION
     Route: 048
     Dates: start: 19970501, end: 19970817
  3. BACTRIM [Concomitant]
     Indication: PROPHYLAXIS
     Route: 048
     Dates: end: 19971108
  4. LITHIUM [Concomitant]
     Route: 048
     Dates: end: 19971108
  5. DEPAMIDE [Concomitant]
     Route: 048
  6. CLARITHROMYCIN [Concomitant]
     Indication: MYCOBACTERIUM AVIUM COMPLEX INFECTION
     Route: 048
     Dates: start: 19950601, end: 19971108
  7. MYAMBUTOL [Concomitant]
     Indication: MYCOBACTERIUM AVIUM COMPLEX INFECTION
     Route: 048
     Dates: start: 19950601, end: 19971108
  8. STAVUDINE [Concomitant]
     Indication: HIV INFECTION
     Route: 048
     Dates: start: 19970501, end: 19971108
  9. EPIVIR [Concomitant]
     Indication: HIV INFECTION
     Route: 048
     Dates: start: 19970501, end: 19971108
  10. VIDEX [Concomitant]
     Indication: HIV INFECTION
     Route: 048
     Dates: end: 19971108

REACTIONS (8)
  - CACHEXIA [None]
  - DEATH [None]
  - DYSPNOEA [None]
  - HYPERTENSION [None]
  - LEFT VENTRICULAR DYSFUNCTION [None]
  - MYOCARDITIS [None]
  - PYREXIA [None]
  - RENAL FAILURE [None]
